FAERS Safety Report 17827392 (Version 2)
Quarter: 2020Q2

REPORT INFORMATION
  Report Type: Report from Study
  Country: None (occurrence: BR)
  Receive Date: 20200527
  Receipt Date: 20200629
  Transmission Date: 20200714
  Serious: Yes (Other)
  Sender: FDA-Public Use
  Company Number: BR-ABBVIE-20K-020-3417144-00

PATIENT
  Sex: Female
  Weight: 70 kg

DRUGS (14)
  1. ALGINAC [Concomitant]
     Active Substance: CYANOCOBALAMIN\DICLOFENAC SODIUM\PYRIDOXINE HYDROCHLORIDE\THIAMINE MONONITRATE
     Indication: PRODUCT USED FOR UNKNOWN INDICATION
  2. VERTIX [Concomitant]
     Indication: DIZZINESS
     Dosage: WHEN EXPERIENCE DIZZINESS
  3. ALCON [Concomitant]
     Indication: CATARACT
     Dates: start: 202003
  4. ALBEL [Concomitant]
     Indication: RHEUMATIC DISORDER
  5. VERTIX [Concomitant]
     Indication: LABYRINTHITIS
  6. SANFO [Concomitant]
     Indication: RHEUMATIC DISORDER
  7. HUMIRA [Suspect]
     Active Substance: ADALIMUMAB
     Route: 058
  8. LOSARTAN. [Concomitant]
     Active Substance: LOSARTAN
     Indication: PRODUCT USED FOR UNKNOWN INDICATION
  9. HUMIRA [Suspect]
     Active Substance: ADALIMUMAB
     Indication: RHEUMATOID ARTHRITIS
     Route: 058
     Dates: start: 20161018
  10. NEO FOLICO [Concomitant]
     Indication: PRODUCT USED FOR UNKNOWN INDICATION
  11. REUQUINOL [Concomitant]
     Active Substance: HYDROXYCHLOROQUINE SULFATE
     Indication: RHEUMATIC DISORDER
  12. MELOXICAM. [Concomitant]
     Active Substance: MELOXICAM
     Indication: PRODUCT USED FOR UNKNOWN INDICATION
  13. TECNOMET [Concomitant]
     Active Substance: METHOTREXATE
     Indication: PRODUCT USED FOR UNKNOWN INDICATION
  14. XEFO [Concomitant]
     Active Substance: LORNOXICAM
     Indication: PRODUCT USED FOR UNKNOWN INDICATION

REACTIONS (8)
  - Blindness [Recovered/Resolved]
  - Cataract [Not Recovered/Not Resolved]
  - Ocular vascular disorder [Unknown]
  - Vision blurred [Not Recovered/Not Resolved]
  - Conjunctivitis [Unknown]
  - Visual impairment [Not Recovered/Not Resolved]
  - Eye disorder [Recovered/Resolved]
  - Eye pain [Not Recovered/Not Resolved]

NARRATIVE: CASE EVENT DATE: 2019
